FAERS Safety Report 9340689 (Version 3)
Quarter: 2013Q3

REPORT INFORMATION
  Report Type: Spontaneous
  Country: BR (occurrence: BR)
  Receive Date: 20130610
  Receipt Date: 20130813
  Transmission Date: 20140515
  Serious: Yes (Other)
  Sender: FDA-Public Use
  Company Number: BR-ABBOTT-13X-020-1100351-00

PATIENT
  Age: 30 Year
  Sex: Female
  Weight: 63 kg

DRUGS (9)
  1. DEPAKENE [Suspect]
     Indication: CONVULSION
     Route: 048
     Dates: start: 1993
  2. DEPAKENE [Suspect]
     Indication: EPILEPSY
     Dosage: 1000 MG DAILY; 2 TABLETS TWICE A DAY
     Route: 048
  3. DEPAKENE [Suspect]
     Route: 048
  4. PURAN T4 [Concomitant]
     Indication: HORMONE REPLACEMENT THERAPY
     Dosage: 1 TABLET IN THE MORNING
     Route: 048
     Dates: start: 2007
  5. RISPERIDONE [Concomitant]
     Indication: ANXIETY
     Route: 048
     Dates: start: 201301
  6. RISPERIDONE [Concomitant]
     Indication: INSOMNIA
  7. DIANE [Concomitant]
     Indication: PRODUCT USED FOR UNKNOWN INDICATION
     Route: 048
     Dates: start: 2008
  8. DEPAKOTE [Concomitant]
     Indication: CONVULSION
     Route: 048
  9. DEPAKOTE [Concomitant]
     Indication: EPILEPSY

REACTIONS (10)
  - Syncope [Recovered/Resolved]
  - Convulsion [Recovered/Resolved]
  - Tooth fracture [Recovered/Resolved]
  - Anxiety [Not Recovered/Not Resolved]
  - Insomnia [Not Recovered/Not Resolved]
  - Alopecia [Unknown]
  - Expired drug administered [Unknown]
  - Depression [Unknown]
  - Feeling abnormal [Unknown]
  - Fall [Unknown]
